FAERS Safety Report 16350857 (Version 1)
Quarter: 2019Q2

REPORT INFORMATION
  Report Type: Spontaneous
  Country: US (occurrence: US)
  Receive Date: 20190524
  Receipt Date: 20190524
  Transmission Date: 20190711
  Serious: Yes (Other)
  Sender: FDA-Public Use
  Company Number: US-RECKITT BENCKISER HEALTHCARE INT LIMITED-RB-85687-2019

PATIENT
  Age: 12 Year
  Sex: Female

DRUGS (1)
  1. CLEARASIL STUBBORN ACNE CONTROL 5IN1 EXFOLIATING WASH [Suspect]
     Active Substance: SALICYLIC ACID
     Indication: PRODUCT USED FOR UNKNOWN INDICATION
     Dosage: UNK, USED FOR 2-3 DAYS
     Route: 061
     Dates: start: 20190201

REACTIONS (5)
  - Eye swelling [Not Recovered/Not Resolved]
  - Skin exfoliation [Not Recovered/Not Resolved]
  - Rash erythematous [Unknown]
  - Dry skin [Not Recovered/Not Resolved]
  - Swelling face [Unknown]

NARRATIVE: CASE EVENT DATE: 2019
